FAERS Safety Report 19350214 (Version 3)
Quarter: 2021Q3

REPORT INFORMATION
  Report Type: Spontaneous
  Country: US (occurrence: US)
  Receive Date: 20210531
  Receipt Date: 20210909
  Transmission Date: 20211014
  Serious: No
  Sender: FDA-Public Use
  Company Number: US-BRISTOL-MYERS SQUIBB COMPANY-BMS-2021-052573

PATIENT
  Age: 46 Year
  Sex: Female
  Weight: 69.3 kg

DRUGS (1)
  1. ORENCIA [Suspect]
     Active Substance: ABATACEPT
     Indication: PSORIATIC ARTHROPATHY
     Dosage: 1 WEEKLY
     Route: 058
     Dates: start: 20210430

REACTIONS (2)
  - Device leakage [Unknown]
  - Syringe issue [Unknown]

NARRATIVE: CASE EVENT DATE: 20210521
